FAERS Safety Report 8505498-5 (Version None)
Quarter: 2012Q3

REPORT INFORMATION
  Report Type: 
  Country: None (occurrence: None)
  Receive Date: 20120712
  Receipt Date: 20120705
  Transmission Date: 20120928
  Serious: Yes (Other)
  Sender: FDA-Public Use
  Company Number: US-JNJFOC-20120702926

PATIENT
  Sex: Male
  Weight: 81.19 kg

DRUGS (4)
  1. PENTASA [Concomitant]
     Route: 065
  2. REMICADE [Suspect]
     Indication: CROHN'S DISEASE
     Route: 042
  3. BENTYL [Concomitant]
     Route: 065
  4. TRAMADOL HCL [Concomitant]
     Route: 065

REACTIONS (1)
  - TOOTH ABSCESS [None]
